FAERS Safety Report 15680588 (Version 1)
Quarter: 2018Q4

REPORT INFORMATION
  Report Type: Spontaneous
  Country: PL (occurrence: PL)
  Receive Date: 20181203
  Receipt Date: 20181203
  Transmission Date: 20190205
  Serious: Yes (Life-Threatening, Hospitalization, Other)
  Sender: FDA-Public Use
  Company Number: PHHY2018PL172422

PATIENT
  Age: 61 Year
  Sex: Male
  Weight: 139.9 kg

DRUGS (2)
  1. ACETYLSALICYLIC ACID [Suspect]
     Active Substance: ASPIRIN
     Indication: ATRIAL FIBRILLATION
     Dosage: UNK
     Route: 065
  2. ENOXAPARIN SODIUM. [Suspect]
     Active Substance: ENOXAPARIN SODIUM
     Indication: ATRIAL FIBRILLATION
     Dosage: 140 DF, BID
     Route: 065

REACTIONS (5)
  - Abdominal mass [Not Recovered/Not Resolved]
  - Anaemia [Unknown]
  - Abdominal wall haematoma [Not Recovered/Not Resolved]
  - Hypovolaemic shock [Unknown]
  - Anxiety [Unknown]
